FAERS Safety Report 14176256 (Version 4)
Quarter: 2018Q3

REPORT INFORMATION
  Report Type: Spontaneous
  Country: US (occurrence: US)
  Receive Date: 20171109
  Receipt Date: 20180704
  Transmission Date: 20181010
  Serious: Yes (Hospitalization, Other)
  Sender: FDA-Public Use
  Company Number: US-DSJP-DSU-2017-139750

PATIENT

DRUGS (4)
  1. AZOR [Suspect]
     Active Substance: AMLODIPINE BESYLATE\OLMESARTAN MEDOXOMIL
     Dosage: 5/40 MG, UNK
  2. BENICAR [Suspect]
     Active Substance: OLMESARTAN MEDOXOMIL
     Indication: PRODUCT USED FOR UNKNOWN INDICATION
     Dosage: 20 MG, UNK
     Route: 048
  3. AZOR [Suspect]
     Active Substance: AMLODIPINE BESYLATE\OLMESARTAN MEDOXOMIL
     Dosage: 10/20 MG, QD
     Route: 048
     Dates: end: 20150223
  4. AZOR [Suspect]
     Active Substance: AMLODIPINE BESYLATE\OLMESARTAN MEDOXOMIL
     Indication: PRODUCT USED FOR UNKNOWN INDICATION
     Dosage: 10/40 MG, QD
     Route: 048
     Dates: start: 20121102

REACTIONS (13)
  - Diverticulum [Unknown]
  - Gastrooesophageal reflux disease [Not Recovered/Not Resolved]
  - Hiatus hernia [Unknown]
  - Syncope [Unknown]
  - Cholecystitis [Recovered/Resolved]
  - Sprue-like enteropathy [Recovering/Resolving]
  - Haemorrhoids [Unknown]
  - Ileus [Unknown]
  - Coeliac disease [Not Recovered/Not Resolved]
  - Orthostatic hypotension [Unknown]
  - Acute kidney injury [Recovered/Resolved]
  - Clostridium difficile colitis [Not Recovered/Not Resolved]
  - Anaemia [Unknown]

NARRATIVE: CASE EVENT DATE: 201401
